FAERS Safety Report 15008903 (Version 1)
Quarter: 2018Q2

REPORT INFORMATION
  Report Type: Spontaneous
  Country: AU (occurrence: AU)
  Receive Date: 20180613
  Receipt Date: 20180613
  Transmission Date: 20180711
  Serious: Yes (Death)
  Sender: FDA-Public Use
  Company Number: AU-BAXTER-2018BAX016850

PATIENT

DRUGS (5)
  1. STERILE WATER [Suspect]
     Active Substance: WATER
     Indication: PARENTERAL NUTRITION
     Route: 065
  2. CERNEVIT [Suspect]
     Active Substance: VITAMINS
     Indication: PARENTERAL NUTRITION
     Route: 065
  3. SODIUM ASCORBATE [Suspect]
     Active Substance: SODIUM ASCORBATE
     Indication: PARENTERAL NUTRITION
     Dosage: FORM. STRENGTH: 15G/50ML; (BAXTER UNLICENSED SPECIAL)
     Route: 065
  4. OLIMEL E [Suspect]
     Active Substance: AMINO ACIDS\DEXTROSE\ELECTROLYTES NOS\SOYBEAN OIL
     Indication: PARENTERAL NUTRITION
     Dosage: 2000 ML
     Route: 065
  5. ADULT TRACE ELEMENTS [Suspect]
     Active Substance: MINERALS
     Indication: PARENTERAL NUTRITION
     Dosage: (BAXTER UNLICENSED SPECIAL)
     Route: 065

REACTIONS (1)
  - Death [Fatal]

NARRATIVE: CASE EVENT DATE: 20180604
